FAERS Safety Report 19002933 (Version 1)
Quarter: 2021Q1

REPORT INFORMATION
  Report Type: Spontaneous
  Country: US (occurrence: US)
  Receive Date: 20210312
  Receipt Date: 20210312
  Transmission Date: 20210420
  Serious: Yes (Other)
  Sender: FDA-Public Use
  Company Number: US-ASTRAZENECA-2021A122517

PATIENT
  Age: 21140 Day
  Sex: Female
  Weight: 71.2 kg

DRUGS (6)
  1. FARXIGA [Suspect]
     Active Substance: DAPAGLIFLOZIN PROPANEDIOL
     Indication: TYPE 2 DIABETES MELLITUS
     Route: 048
     Dates: start: 20210212
  2. LOSARTAN. [Concomitant]
     Active Substance: LOSARTAN
     Route: 048
  3. ROSUVASTATIN. [Suspect]
     Active Substance: ROSUVASTATIN
     Route: 048
  4. VITAMIN D3 [Concomitant]
     Active Substance: CHOLECALCIFEROL
     Indication: VITAMIN D DECREASED
     Dosage: 5000 UNIT DAILY
     Route: 048
  5. SYNTHROID [Concomitant]
     Active Substance: LEVOTHYROXINE SODIUM
     Indication: HYPOTHYROIDISM
     Dosage: 112.0UG UNKNOWN
     Route: 048
  6. FOLIC ACID. [Concomitant]
     Active Substance: FOLIC ACID
     Indication: THALASSAEMIA
     Route: 048

REACTIONS (1)
  - Autoimmune thyroiditis [Unknown]

NARRATIVE: CASE EVENT DATE: 20210301
